FAERS Safety Report 18032823 (Version 1)
Quarter: 2020Q3

REPORT INFORMATION
  Report Type: Spontaneous
  Country: US (occurrence: US)
  Receive Date: 20200716
  Receipt Date: 20200716
  Transmission Date: 20201103
  Serious: No
  Sender: FDA-Public Use
  Company Number: US-AERIE-US-2020-001521

PATIENT
  Age: 75 Year
  Sex: Male

DRUGS (5)
  1. DORZOLAMIDE [Concomitant]
     Active Substance: DORZOLAMIDE
     Dosage: OU, BID
     Route: 047
  2. TRAVOPROST. [Concomitant]
     Active Substance: TRAVOPROST
     Dosage: OU, QHS
     Route: 047
  3. BRIMONIDINE [Concomitant]
     Active Substance: BRIMONIDINE TARTRATE
     Dosage: OU, BID
     Route: 047
  4. RHOPRESSA [Suspect]
     Active Substance: NETARSUDIL MESYLATE
     Indication: INTRAOCULAR PRESSURE INCREASED
     Dosage: QHS (RIGHT EYE)
     Route: 047
  5. PREDNISOLONE ACETATE. [Concomitant]
     Active Substance: PREDNISOLONE ACETATE
     Dosage: OD, QID
     Route: 047

REACTIONS (1)
  - Corneal oedema [Recovering/Resolving]
